FAERS Safety Report 23941588 (Version 1)
Quarter: 2024Q2

REPORT INFORMATION
  Report Type: Spontaneous
  Country: US (occurrence: US)
  Receive Date: 20240605
  Receipt Date: 20240605
  Transmission Date: 20240716
  Serious: Yes (Other)
  Sender: FDA-Public Use
  Company Number: US-PFIZER INC-PV202400072642

PATIENT

DRUGS (1)
  1. DIFLUCAN [Suspect]
     Active Substance: FLUCONAZOLE
     Indication: Fungal infection
     Dosage: UNK

REACTIONS (4)
  - Anaphylactic reaction [Unknown]
  - Rash [Unknown]
  - Pain [Unknown]
  - Candida infection [Unknown]

NARRATIVE: CASE EVENT DATE: 20240529
